FAERS Safety Report 7927922 (Version 6)
Quarter: 2014Q1

REPORT INFORMATION
  Report Type: Spontaneous
  Country: US (occurrence: US)
  Receive Date: 20110503
  Receipt Date: 20140214
  Transmission Date: 20141002
  Serious: Yes (Hospitalization)
  Sender: FDA-Public Use
  Company Number: US-B.I. PHARMACEUTICALS,INC./RIDGEFIELD-2011-BP-11724BP

PATIENT
  Age: 90 Year
  Sex: Male
  Weight: 78.47 kg

DRUGS (12)
  1. PRADAXA [Suspect]
     Indication: THERAPY CHANGE
     Dosage: 300 MG
     Route: 048
     Dates: start: 20110420, end: 20110423
  2. PRADAXA [Suspect]
     Indication: ATRIAL FIBRILLATION
  3. PRADAXA [Suspect]
     Indication: ANTICOAGULANT THERAPY
  4. PRADAXA [Suspect]
     Indication: CARDIOVASCULAR EVENT PROPHYLAXIS
  5. CARVEDILOL [Concomitant]
     Indication: HYPERTENSION
     Dosage: 50 MG
     Route: 048
     Dates: start: 201002, end: 201104
  6. DIOVAN [Concomitant]
     Indication: HYPERTENSION
     Dosage: 80 MG
     Route: 048
     Dates: start: 200503, end: 201104
  7. FUROSEMIDE [Concomitant]
     Dosage: 20 MG
     Route: 048
     Dates: start: 201002, end: 201104
  8. ASPIRIN [Concomitant]
     Dosage: 81 MG
     Route: 048
  9. FLAXSEED OIL [Concomitant]
     Dosage: 1000 MG
     Route: 048
  10. ONE A DAY MEN^S 50 PLUS [Concomitant]
  11. FISH OIL [Concomitant]
  12. VITAMIN D3 [Concomitant]

REACTIONS (5)
  - Haemorrhage [Unknown]
  - Haemoptysis [Recovered/Resolved]
  - Drug hypersensitivity [Recovered/Resolved]
  - Mouth haemorrhage [Recovered/Resolved]
  - Anaemia [Unknown]
